FAERS Safety Report 24126321 (Version 2)
Quarter: 2024Q3

REPORT INFORMATION
  Report Type: Spontaneous
  Country: CN (occurrence: CN)
  Receive Date: 20240723
  Receipt Date: 20240724
  Transmission Date: 20241017
  Serious: Yes (Hospitalization)
  Sender: PFIZER
  Company Number: CN-MLMSERVICE-20240710-PI126486-00270-1

PATIENT
  Age: 42 Year
  Sex: Female

DRUGS (7)
  1. METHYLPREDNISOLONE [Suspect]
     Active Substance: METHYLPREDNISOLONE
     Indication: Subacute cutaneous lupus erythematosus
     Dosage: UNK
     Dates: start: 2021
  2. METHYLPREDNISOLONE [Suspect]
     Active Substance: METHYLPREDNISOLONE
     Dosage: 32 MG, 1X/DAY
     Route: 048
  3. HYDROXYCHLOROQUINE SULFATE [Suspect]
     Active Substance: HYDROXYCHLOROQUINE SULFATE
     Indication: Subacute cutaneous lupus erythematosus
     Dosage: UNK
     Dates: start: 2021
  4. THALIDOMIDE [Suspect]
     Active Substance: THALIDOMIDE
     Indication: Subacute cutaneous lupus erythematosus
     Dosage: UNK
     Dates: start: 2021
  5. CALCIUM CARBONATE [Concomitant]
     Active Substance: CALCIUM CARBONATE
     Dosage: D3 TABLET
     Route: 048
  6. DAPSONE [Concomitant]
     Active Substance: DAPSONE
     Dosage: 100 MG, 1X/DAY
     Route: 048
  7. RIFAMPIN [Concomitant]
     Active Substance: RIFAMPIN
     Dosage: 450 MG, 1X/DAY
     Route: 048

REACTIONS (2)
  - Lepromatous leprosy [Recovering/Resolving]
  - Therapeutic product effect incomplete [Unknown]

NARRATIVE: CASE EVENT DATE: 20231201
